FAERS Safety Report 17957414 (Version 1)
Quarter: 2020Q2

REPORT INFORMATION
  Report Type: Spontaneous
  Country: NO (occurrence: NO)
  Receive Date: 20200629
  Receipt Date: 20200629
  Transmission Date: 20200714
  Serious: Yes (Hospitalization)
  Sender: FDA-Public Use
  Company Number: NO-ELI_LILLY_AND_COMPANY-NO202006010571

PATIENT
  Age: 60 Year
  Sex: Female

DRUGS (11)
  1. ZYPADHERA [Suspect]
     Active Substance: OLANZAPINE PAMOATE
     Indication: SCHIZOPHRENIA
     Dosage: 300 MG, EVERY 2 WEEKS
     Route: 030
     Dates: start: 20200430
  2. SYMBICORT [Concomitant]
     Active Substance: BUDESONIDE\FORMOTEROL FUMARATE DIHYDRATE
     Indication: CHRONIC OBSTRUCTIVE PULMONARY DISEASE
     Dosage: 1 DOSAGE FORM, BID
     Route: 055
  3. ZYPADHERA [Suspect]
     Active Substance: OLANZAPINE PAMOATE
     Indication: SCHIZOPHRENIA
     Dosage: 300 MG, EVERY 2 WEEKS
     Route: 030
     Dates: start: 20200430
  4. NICOTINELL [Concomitant]
     Active Substance: NICOTINE
     Indication: SMOKING CESSATION THERAPY
     Dosage: 4 MG, AS NEEDED
  5. NYCOPLUS MAGNESIUM [Concomitant]
     Indication: ALCOHOLISM
     Dosage: 350 MG, EVERY 12 HOURS
     Route: 048
  6. ZYPADHERA [Suspect]
     Active Substance: OLANZAPINE PAMOATE
     Indication: SCHIZOPHRENIA
     Dosage: 300 MG, EVERY 2 WEEKS
     Route: 030
     Dates: start: 20200430
  7. LOSARTAN. [Concomitant]
     Active Substance: LOSARTAN
     Indication: HYPERTENSION
     Dosage: 50 MG, DAILY
     Route: 048
  8. ZYRTEC [Concomitant]
     Active Substance: CETIRIZINE HYDROCHLORIDE
     Indication: HYPERSENSITIVITY
     Dosage: 1 DOSAGE FORM, DAILY
     Route: 048
     Dates: start: 20200518
  9. DIVISUN [Concomitant]
     Active Substance: CHOLECALCIFEROL
     Indication: VITAMIN D DEFICIENCY
     Dosage: 800 INTERNATIONAL UNIT, DAILY
     Route: 048
  10. BEROCCA [ASCORBIC ACID;BIOTIN;CALCIUM CARBONA [Concomitant]
     Indication: ALCOHOLISM
     Dosage: 1 DOSAGE FORM, DAILY
     Route: 048
  11. CIRCADIN [Concomitant]
     Active Substance: MELATONIN
     Indication: INSOMNIA
     Dosage: 2 MG, DAILY
     Route: 048
     Dates: start: 20200603

REACTIONS (1)
  - Post-injection delirium sedation syndrome [Recovered/Resolved]

NARRATIVE: CASE EVENT DATE: 20200604
